FAERS Safety Report 5939508-6 (Version None)
Quarter: 2008Q4

REPORT INFORMATION
  Report Type: 
  Country: None (occurrence: None)
  Receive Date: 20081030
  Receipt Date: 20081021
  Transmission Date: 20090506
  Serious: Yes (Hospitalization)
  Sender: FDA-Public Use
  Company Number: SPV1-2008-02259

PATIENT
  Age: 49 Year
  Sex: Male

DRUGS (1)
  1. FOSRENOL [Suspect]
     Dosage: 1000 MG,EACH MEAL,ORAL
     Route: 048

REACTIONS (3)
  - INTERVERTEBRAL DISC COMPRESSION [None]
  - MEDICAL DEVICE SITE REACTION [None]
  - RASH PAPULAR [None]
